FAERS Safety Report 4302927-8 (Version None)
Quarter: 2004Q1

REPORT INFORMATION
  Report Type: 
  Country: None (occurrence: None)
  Receive Date: 20040223
  Receipt Date: 20040223
  Transmission Date: 20041129
  Serious: Yes (Hospitalization)
  Sender: FDA-Public Use
  Company Number: None

PATIENT
  Age: 78 Year
  Sex: Male
  Weight: 66 kg

DRUGS (8)
  1. WARFARIN SODIUM [Suspect]
     Indication: DEEP VEIN THROMBOSIS
     Dosage: VARIED DAILY ORAL
     Route: 048
  2. FUROSEMIDE [Concomitant]
  3. IRON SULFATETHIAMIN COMPOUND TAB [Concomitant]
  4. SIMVASTATIN [Concomitant]
  5. TERAZOCIN [Concomitant]
  6. EPOGEN [Concomitant]
  7. METHOCARBAMOL [Concomitant]
  8. LACTULOSE [Concomitant]

REACTIONS (5)
  - ASTHENIA [None]
  - DIZZINESS [None]
  - EPISTAXIS [None]
  - HAEMATOCHEZIA [None]
  - INTERNATIONAL NORMALISED RATIO INCREASED [None]
